FAERS Safety Report 18042938 (Version 1)
Quarter: 2020Q3

REPORT INFORMATION
  Report Type: Spontaneous
  Country: US (occurrence: US)
  Receive Date: 20200719
  Receipt Date: 20200719
  Transmission Date: 20201103
  Serious: No
  Sender: FDA-Public Use
  Company Number: None

PATIENT
  Age: 89 Year
  Sex: Female
  Weight: 75 kg

DRUGS (3)
  1. REMDESIVIR. [Suspect]
     Active Substance: REMDESIVIR
     Indication: COVID-19
     Route: 042
     Dates: start: 20200716, end: 20200719
  2. DEXAMETHASONE ORAL TABLET [Concomitant]
     Dates: start: 20200717
  3. ENOXAPARIN 30 MG SYRINGE [Concomitant]
     Dates: start: 20200715

REACTIONS (6)
  - Oxygen saturation decreased [None]
  - Lung opacity [None]
  - SARS-CoV-2 test positive [None]
  - Lip swelling [None]
  - Lip erythema [None]
  - Hypersensitivity [None]

NARRATIVE: CASE EVENT DATE: 20200719
